FAERS Safety Report 4432426-4 (Version None)
Quarter: 2004Q3

REPORT INFORMATION
  Report Type: 
  Country: None (occurrence: None)
  Receive Date: 20040820
  Receipt Date: 20040810
  Transmission Date: 20050211
  Serious: Yes (Hospitalization)
  Sender: FDA-Public Use
  Company Number: 2004UW17160

PATIENT
  Age: 61 Year
  Sex: Female

DRUGS (1)
  1. NOLVADEX [Suspect]
     Dates: start: 20030501, end: 20040501

REACTIONS (5)
  - CARDIAC ARREST [None]
  - FLUID RETENTION [None]
  - PANCREATITIS [None]
  - PULMONARY EMBOLISM [None]
  - RENAL DISORDER [None]
